FAERS Safety Report 6589498-0 (Version None)
Quarter: 2010Q1

REPORT INFORMATION
  Report Type: 
  Country: None (occurrence: None)
  Receive Date: 20100205
  Receipt Date: 20100128
  Transmission Date: 20100710
  Serious: Yes (Other)
  Sender: FDA-Public Use
  Company Number: 005865

PATIENT
  Sex: Male

DRUGS (1)
  1. KEPPRA [Suspect]
     Dosage: (500 MG BID), (1000 MG, ONLY ONCE ADMINISTERED INTRAVENOUS))
     Route: 042

REACTIONS (1)
  - ATRIOVENTRICULAR BLOCK SECOND DEGREE [None]
